FAERS Safety Report 6963447-5 (Version None)
Quarter: 2010Q3

REPORT INFORMATION
  Report Type: 
  Country: None (occurrence: None)
  Receive Date: 20100902
  Receipt Date: 20100901
  Transmission Date: 20110219
  Serious: Yes (Hospitalization)
  Sender: FDA-Public Use
  Company Number: B0671079A

PATIENT
  Sex: Female
  Weight: 60 kg

DRUGS (8)
  1. ARIXTRA [Suspect]
     Indication: THROMBOSIS PROPHYLAXIS
     Dosage: 2.5MG PER DAY
     Route: 058
     Dates: start: 20100422, end: 20100427
  2. PROFENID [Suspect]
     Indication: PAIN
     Route: 048
     Dates: start: 20100423, end: 20100426
  3. FORLAX [Concomitant]
     Indication: CONSTIPATION
     Route: 048
     Dates: start: 20100422
  4. EUPHYTOSE [Concomitant]
     Indication: ANXIETY
     Dosage: 3TAB PER DAY
     Route: 048
  5. VASTEN [Concomitant]
     Dosage: 10MG PER DAY
     Route: 048
     Dates: start: 20070101
  6. PARIET [Concomitant]
     Indication: PRODUCT USED FOR UNKNOWN INDICATION
     Dosage: 20MG PER DAY
     Route: 048
     Dates: start: 20100422
  7. ACETAMINOPHEN [Concomitant]
     Indication: PAIN
     Dosage: 3G PER DAY
     Route: 048
     Dates: start: 20100422
  8. STILNOX [Concomitant]
     Indication: INSOMNIA
     Dosage: 10MG PER DAY
     Route: 048
     Dates: start: 20100425, end: 20100426

REACTIONS (4)
  - DRUG INTERACTION [None]
  - HAEMATOMA [None]
  - HAEMOGLOBIN DECREASED [None]
  - PLATELET COUNT INCREASED [None]
